FAERS Safety Report 9168483 (Version 2)
Quarter: 2013Q2

REPORT INFORMATION
  Report Type: Spontaneous
  Country: AR (occurrence: AR)
  Receive Date: 20130318
  Receipt Date: 20130405
  Transmission Date: 20140414
  Serious: Yes (Other)
  Sender: FDA-Public Use
  Company Number: PHHY2013AR025936

PATIENT
  Sex: Female

DRUGS (1)
  1. EXELON PATCH [Suspect]
     Indication: MEMORY IMPAIRMENT
     Dosage: 4.6 MG, (5 CM) DAILY
     Route: 062

REACTIONS (3)
  - Fractured coccyx [Recovering/Resolving]
  - Fall [Recovering/Resolving]
  - Drug ineffective [Unknown]
